FAERS Safety Report 25671110 (Version 1)
Quarter: 2025Q3

REPORT INFORMATION
  Report Type: Report from Study
  Country: US (occurrence: US)
  Receive Date: 20250812
  Receipt Date: 20250812
  Transmission Date: 20251021
  Serious: No
  Sender: JOHNSON AND JOHNSON
  Company Number: US-JNJFOC-20250812887

PATIENT
  Age: 59 Year

DRUGS (1)
  1. TREMFYA [Suspect]
     Active Substance: GUSELKUMAB
     Indication: Crohn^s disease
     Route: 065
     Dates: start: 20250610

REACTIONS (8)
  - Hepatic enzyme increased [Not Recovered/Not Resolved]
  - Faeces discoloured [Recovered/Resolved]
  - Abnormal faeces [Unknown]
  - Frequent bowel movements [Unknown]
  - Hypersensitivity [Unknown]
  - Chest discomfort [Unknown]
  - Blood iron decreased [Unknown]
  - C-reactive protein increased [Not Recovered/Not Resolved]
